FAERS Safety Report 4659421-4 (Version None)
Quarter: 2005Q2

REPORT INFORMATION
  Report Type: 
  Country: None (occurrence: None)
  Receive Date: 20050412
  Receipt Date: 20050105
  Transmission Date: 20051028
  Serious: No
  Sender: FDA-Public Use
  Company Number: 2005S1000004

PATIENT
  Age: 48 Year
  Sex: Male
  Weight: 68.5 kg

DRUGS (21)
  1. CUBICIN [Suspect]
     Indication: METASTASIS
     Dosage: 450 MG; Q24H; IV
     Route: 042
     Dates: start: 20041231
  2. CUBICIN [Suspect]
     Indication: OSTEOMYELITIS
     Dosage: 450 MG; Q24H; IV
     Route: 042
     Dates: start: 20041231
  3. LISINOPRIL [Concomitant]
  4. METOPROLOL [Concomitant]
  5. INSULIN [Concomitant]
  6. ATROVENT [Concomitant]
  7. PREVACID [Concomitant]
  8. TAMSULOSIN [Concomitant]
  9. AMITRIPTYLINE [Concomitant]
  10. INSULIN [Concomitant]
  11. PERCOCET [Concomitant]
  12. ACETAMINOPHEN [Concomitant]
  13. MAGNESIUM OXIDE [Concomitant]
  14. MULTI-VITAMIN [Concomitant]
  15. HEPARIN [Concomitant]
  16. ALBUTEROL [Concomitant]
  17. FLUCONAZOLE [Concomitant]
  18. VANCOMYCIN [Concomitant]
  19. AZITHROMYCIN [Concomitant]
  20. GENTAMICIN [Concomitant]
  21. RIFAMPIN [Concomitant]

REACTIONS (1)
  - RENAL FAILURE [None]
